FAERS Safety Report 6196111-3 (Version None)
Quarter: 2009Q2

REPORT INFORMATION
  Report Type: 
  Country: None (occurrence: None)
  Receive Date: 20090520
  Receipt Date: 20070508
  Transmission Date: 20091009
  Serious: Yes (Hospitalization)
  Sender: FDA-Public Use
  Company Number: US-ASTRAZENECA-2006UW23766

PATIENT
  Age: 17640 Day
  Sex: Female
  Weight: 96.6 kg

DRUGS (35)
  1. SEROQUEL [Suspect]
     Indication: DEPRESSION
     Dosage: 100-300 MG
     Route: 048
     Dates: start: 20020525
  2. SEROQUEL [Suspect]
     Route: 048
  3. ZYPREXA [Suspect]
  4. GEODON [Concomitant]
  5. RISPERDAL [Concomitant]
  6. OLANZAPINE [Concomitant]
     Dosage: 5-10 MG
     Route: 048
  7. DIAZEPAM [Concomitant]
     Dosage: 2-10 MG, THREE TIMES A DAY
     Route: 048
  8. FOSAMAX [Concomitant]
     Route: 048
  9. CENESTIN [Concomitant]
     Route: 048
  10. TRAZODONE HCL [Concomitant]
     Route: 048
  11. FLUOXETINE HCL [Concomitant]
     Route: 048
  12. TRICOR [Concomitant]
     Route: 048
  13. CONCERTA [Concomitant]
     Dosage: 18-36 MG
     Route: 048
  14. CHANTIX [Concomitant]
     Route: 048
  15. SYMBYAX [Concomitant]
     Route: 048
  16. WELLBUTRIN XL [Concomitant]
     Route: 048
  17. PROMETHAZINE [Concomitant]
     Route: 048
  18. MECLIZINE [Concomitant]
     Route: 048
  19. METFORMIN HCL [Concomitant]
     Route: 048
  20. GUAIFEN [Concomitant]
     Route: 048
  21. OMNICEF [Concomitant]
     Route: 048
  22. EFFEXOR [Concomitant]
     Dosage: 37.5 TO 150 MG, TWO TIMES A DAY
     Route: 048
  23. FUROSEMIDE [Concomitant]
     Dosage: 20 TO 40 MG, DAILY
     Route: 048
  24. PAXIL [Concomitant]
     Dosage: 25-40 MG, DAILY, THREE TIMES A DAY
     Route: 048
  25. DIFFLUCAN [Concomitant]
     Route: 048
  26. ZITHROMAX [Concomitant]
     Route: 048
  27. NEXIUM [Concomitant]
     Route: 048
  28. ASACOL [Concomitant]
     Indication: COLITIS
     Route: 048
  29. LEXAPRO [Concomitant]
     Route: 048
  30. LORABID [Concomitant]
     Route: 048
  31. LORAZEPAM [Concomitant]
     Dosage: 1 TO 2 MG, EVERY FOUR TO SIX HOURS
     Route: 048
  32. CLORAZEPATE DIPOTASSIUM [Concomitant]
     Route: 048
  33. LEVAQUIN [Concomitant]
     Route: 048
     Dates: start: 20011216
  34. DETROL LA [Concomitant]
     Route: 048
  35. DETROPAN XL [Concomitant]
     Route: 048

REACTIONS (18)
  - BRONCHITIS [None]
  - CHRONIC OBSTRUCTIVE PULMONARY DISEASE [None]
  - COUGH [None]
  - DEPRESSION [None]
  - DIABETES MELLITUS [None]
  - DIZZINESS [None]
  - FAECAL INCONTINENCE [None]
  - HAEMORRHOIDS [None]
  - HAND FRACTURE [None]
  - INSOMNIA [None]
  - MOUTH ULCERATION [None]
  - MUSCLE INJURY [None]
  - OEDEMA PERIPHERAL [None]
  - OTITIS MEDIA [None]
  - PERIARTHRITIS [None]
  - REFLUX OESOPHAGITIS [None]
  - TEMPOROMANDIBULAR JOINT SYNDROME [None]
  - TIBIA FRACTURE [None]
